FAERS Safety Report 14863289 (Version 6)
Quarter: 2019Q1

REPORT INFORMATION
  Report Type: Spontaneous
  Country: PL (occurrence: PL)
  Receive Date: 20180508
  Receipt Date: 20190225
  Transmission Date: 20190417
  Serious: Yes (Other)
  Sender: FDA-Public Use
  Company Number: PL-MYLANLABS-2018M1029641

PATIENT
  Age: 57 Year
  Sex: Male
  Weight: 86 kg

DRUGS (21)
  1. DIAZEPAM. [Interacting]
     Active Substance: DIAZEPAM
     Indication: NIGHTMARE
     Dosage: 10 MILLIGRAM, QD, (10 MG, 10 DAY) (AT BEDTIME (10 MG,1 IN 1 D)
     Route: 065
  2. DIAZEPAM. [Interacting]
     Active Substance: DIAZEPAM
     Indication: INITIAL INSOMNIA
  3. DEPREXETIN [Interacting]
     Active Substance: FLUOXETINE HYDROCHLORIDE
     Indication: FIBROMYALGIA
     Dosage: 20 MILLIGRAM, BID (20 MG,2 IN 1 D)
     Route: 048
     Dates: start: 20171103, end: 20171122
  4. ZOFENIL [Concomitant]
     Active Substance: ZOFENOPRIL
     Indication: PRODUCT USED FOR UNKNOWN INDICATION
     Dosage: UNK
  5. PARACETAMOL [Concomitant]
     Active Substance: ACETAMINOPHEN
     Indication: PRODUCT USED FOR UNKNOWN INDICATION
  6. ZOLPIDEM [Suspect]
     Active Substance: ZOLPIDEM\ZOLPIDEM TARTRATE
     Indication: SLEEP DISORDER
     Dosage: 10 MILLIGRAM (10 MG IN 10 DAY)
     Route: 065
  7. FLUOXETINE [Interacting]
     Active Substance: FLUOXETINE HYDROCHLORIDE
     Dosage: 40 MILLIGRAM, QD (20MG,BID)
     Route: 048
     Dates: start: 20171103, end: 20171122
  8. SIMVASTATIN. [Concomitant]
     Active Substance: SIMVASTATIN
     Indication: PRODUCT USED FOR UNKNOWN INDICATION
     Dosage: UNK
  9. ZOLPIDEM [Interacting]
     Active Substance: ZOLPIDEM\ZOLPIDEM TARTRATE
     Indication: INSOMNIA
     Dosage: 10 MILLIGRAM, QD (10 MG (1 IN 1 D)
     Route: 048
     Dates: start: 20171122, end: 20171124
  10. FLUOXETINE [Interacting]
     Active Substance: FLUOXETINE HYDROCHLORIDE
     Indication: FIBROMYALGIA
     Dosage: 40 MILLIGRAM,(40 MG, 40 DAY)
     Route: 065
  11. ZOLPIDEM [Interacting]
     Active Substance: ZOLPIDEM\ZOLPIDEM TARTRATE
     Indication: DIABETES MELLITUS
  12. ZOLPIDEM [Interacting]
     Active Substance: ZOLPIDEM\ZOLPIDEM TARTRATE
     Indication: FIBROMYALGIA
  13. METFORMIN [Concomitant]
     Active Substance: METFORMIN HYDROCHLORIDE
     Indication: INSOMNIA
  14. DULOXETINE. [Concomitant]
     Active Substance: DULOXETINE
     Indication: PAIN MANAGEMENT
  15. TRAZODONE [Concomitant]
     Active Substance: TRAZODONE HYDROCHLORIDE
     Indication: PRODUCT USED FOR UNKNOWN INDICATION
  16. METFORMIN [Concomitant]
     Active Substance: METFORMIN HYDROCHLORIDE
     Indication: TYPE 2 DIABETES MELLITUS
     Dosage: UNK
     Route: 065
  17. DULOXETINE. [Concomitant]
     Active Substance: DULOXETINE
     Indication: PRODUCT USED FOR UNKNOWN INDICATION
  18. PARACETAMOL [Concomitant]
     Active Substance: ACETAMINOPHEN
     Indication: PRODUCT USED FOR UNKNOWN INDICATION
  19. MIANSERIN [Interacting]
     Active Substance: MIANSERIN
     Indication: NIGHTMARE
     Dosage: 20 MILLIGRAM, QD,(20 MG, 20 DAY)
     Route: 065
  20. DEPREXETIN [Interacting]
     Active Substance: FLUOXETINE HYDROCHLORIDE
     Indication: DIABETES MELLITUS
  21. BISOCARD [Concomitant]
     Active Substance: BISOPROLOL
     Indication: PRODUCT USED FOR UNKNOWN INDICATION

REACTIONS (10)
  - Nightmare [Recovered/Resolved]
  - Blood glucose fluctuation [Recovering/Resolving]
  - Initial insomnia [Recovered/Resolved]
  - Sleep disorder [Recovered/Resolved]
  - Dry mouth [Recovering/Resolving]
  - Drug interaction [Unknown]
  - Abnormal dreams [Recovered/Resolved]
  - Poor quality sleep [Recovered/Resolved]
  - Off label use [Recovered/Resolved]
  - Somnolence [Recovering/Resolving]
